FAERS Safety Report 15084898 (Version 1)
Quarter: 2018Q2

REPORT INFORMATION
  Report Type: Spontaneous
  Country: JP (occurrence: JP)
  Receive Date: 20180628
  Receipt Date: 20180628
  Transmission Date: 20180711
  Serious: Yes (Death, Hospitalization, Other)
  Sender: FDA-Public Use
  Company Number: JP-009507513-1708JPN003373J

PATIENT
  Age: 81 Year
  Sex: Female
  Weight: 48 kg

DRUGS (2)
  1. KEYTRUDA [Suspect]
     Active Substance: PEMBROLIZUMAB
     Indication: LUNG ADENOCARCINOMA
     Dosage: 200 MG, Q3W
     Route: 041
     Dates: start: 20170427, end: 20171220
  2. CODEINE PHOSPHATE HYDRATE [Concomitant]
     Active Substance: CODEINE PHOSPHATE
     Indication: LUNG ADENOCARCINOMA
     Dosage: 20 MG, PRN
     Route: 048

REACTIONS (5)
  - Pericarditis malignant [Recovering/Resolving]
  - Pleural effusion [Recovering/Resolving]
  - Pruritus [Not Recovered/Not Resolved]
  - Death [Fatal]
  - Malignant pleural effusion [Recovering/Resolving]

NARRATIVE: CASE EVENT DATE: 20170906
